FAERS Safety Report 21036678 (Version 5)
Quarter: 2022Q3

REPORT INFORMATION
  Report Type: Report from Study
  Country: US (occurrence: US)
  Receive Date: 20220702
  Receipt Date: 20220921
  Transmission Date: 20221027
  Serious: No
  Sender: FDA-Public Use
  Company Number: US-NOVARTISTESTPH-NVSC2022US150858

PATIENT
  Sex: Female

DRUGS (1)
  1. COSENTYX [Suspect]
     Active Substance: SECUKINUMAB
     Indication: Psoriatic arthropathy
     Dosage: UNK
     Route: 065
     Dates: start: 20211203

REACTIONS (9)
  - Condition aggravated [Unknown]
  - Peripheral swelling [Unknown]
  - COVID-19 [Unknown]
  - Malaise [Unknown]
  - Illness [Recovered/Resolved]
  - Pyrexia [Unknown]
  - Protein total decreased [Unknown]
  - Gait disturbance [Unknown]
  - Inflammation [Recovering/Resolving]
